FAERS Safety Report 13259322 (Version 3)
Quarter: 2017Q2

REPORT INFORMATION
  Report Type: Spontaneous
  Country: US (occurrence: US)
  Receive Date: 20170222
  Receipt Date: 20170426
  Transmission Date: 20170830
  Serious: Yes (Other)
  Sender: FDA-Public Use
  Company Number: US-PFIZER INC-2017073371

PATIENT
  Age: 70 Year
  Sex: Female

DRUGS (2)
  1. XELJANZ XR [Suspect]
     Active Substance: TOFACITINIB CITRATE
     Indication: RHEUMATOID ARTHRITIS
     Dosage: 11 MG, DAILY
     Dates: start: 201611
  2. METHOTREXATE SODIUM. [Suspect]
     Active Substance: METHOTREXATE SODIUM
     Dosage: 8 DF, WEEKLY (8 LITTLE PILLS ONCE PER WEEK (ALL AT ONCE))

REACTIONS (8)
  - Abasia [Unknown]
  - Walking aid user [Unknown]
  - Pain in extremity [Unknown]
  - Drug ineffective [Unknown]
  - Paraesthesia [Unknown]
  - Blister [Unknown]
  - Fibromyalgia [Unknown]
  - Herpes zoster [Not Recovered/Not Resolved]
